FAERS Safety Report 9343143 (Version 1)
Quarter: 2013Q2

REPORT INFORMATION
  Report Type: Spontaneous
  Country: CN (occurrence: CN)
  Receive Date: 20130611
  Receipt Date: 20130611
  Transmission Date: 20140414
  Serious: Yes (Other)
  Sender: FDA-Public Use
  Company Number: CN-PFIZER INC-2013170389

PATIENT
  Age: 57 Year
  Sex: 0

DRUGS (2)
  1. LIPITOR [Suspect]
     Dosage: 20 MG, 1X/DAY (EVERY NIGHT)
     Route: 048
     Dates: start: 2012
  2. SIMVASTATIN [Suspect]
     Dosage: 20 MG, ONCE DAILY
     Route: 048
     Dates: start: 20070213

REACTIONS (2)
  - Blood creatine phosphokinase increased [Unknown]
  - Blood creatine phosphokinase MB increased [Unknown]
